FAERS Safety Report 5575225-2 (Version None)
Quarter: 2007Q4

REPORT INFORMATION
  Report Type: 
  Country: None (occurrence: None)
  Receive Date: 20071227
  Receipt Date: 20071215
  Transmission Date: 20080405
  Serious: Yes (Other)
  Sender: FDA-Public Use
  Company Number: US-PFIZER INC-2007105475

PATIENT
  Sex: Male
  Weight: 84.09 kg

DRUGS (2)
  1. DILANTIN [Suspect]
     Indication: GRAND MAL CONVULSION
     Route: 048
  2. DILANTIN [Suspect]

REACTIONS (1)
  - ANTICONVULSANT DRUG LEVEL BELOW THERAPEUTIC [None]
